FAERS Safety Report 26083107 (Version 1)
Quarter: 2025Q4

REPORT INFORMATION
  Report Type: Spontaneous
  Country: US (occurrence: None)
  Receive Date: 20251124
  Receipt Date: 20251124
  Transmission Date: 20260117
  Serious: Yes (unspecified)
  Sender: FDA-CTU
  Company Number: None

PATIENT
  Age: 78 Year
  Sex: Male

DRUGS (2)
  1. HEPARIN SODIUM AND DEXTROSE [Suspect]
     Active Substance: HEPARIN SODIUM
     Indication: Atrial fibrillation
     Dosage: ?OTHER FREQUENCY : SLIDING SCALE?
     Route: 042
     Dates: start: 20240612, end: 20240616
  2. APIXABAN [Suspect]
     Active Substance: APIXABAN

REACTIONS (4)
  - Gastrointestinal haemorrhage [None]
  - Melaena [None]
  - Anaemia [None]
  - Ulcer [None]

NARRATIVE: CASE EVENT DATE: 20240616
